FAERS Safety Report 15768037 (Version 9)
Quarter: 2019Q1

REPORT INFORMATION
  Report Type: Spontaneous
  Country: US (occurrence: US)
  Receive Date: 20181227
  Receipt Date: 20190204
  Transmission Date: 20190417
  Serious: Yes (Hospitalization, Other)
  Sender: FDA-Public Use
  Company Number: US-009507513-1812USA011037

PATIENT
  Age: 22 Year
  Sex: Female
  Weight: 122.9 kg

DRUGS (2)
  1. NEXPLANON [Suspect]
     Active Substance: ETONOGESTREL
     Dosage: 1 ROD, IN RIGHT ARM, EVERY 3 YEARS
     Route: 059
     Dates: start: 20180913
  2. NEXPLANON [Suspect]
     Active Substance: ETONOGESTREL
     Indication: CONTRACEPTION
     Dosage: 1 ROD, IN RIGHT ARM, EVERY 3 YEARS
     Route: 059
     Dates: start: 2015, end: 20180913

REACTIONS (16)
  - Anxiety [Unknown]
  - Elbow operation [Unknown]
  - Amenorrhoea [Unknown]
  - Acne [Unknown]
  - Product dose omission [Unknown]
  - Cholecystectomy [Unknown]
  - Obesity [Unknown]
  - Implant site pain [Unknown]
  - Intramedullary rod insertion [Unknown]
  - Pregnancy with implant contraceptive [Recovered/Resolved]
  - Complication of device removal [Not Recovered/Not Resolved]
  - Unintended pregnancy [Recovered/Resolved]
  - Depression [Unknown]
  - Abortion spontaneous incomplete [Recovered/Resolved]
  - Complication associated with device [Not Recovered/Not Resolved]
  - Wisdom teeth removal [Unknown]

NARRATIVE: CASE EVENT DATE: 2015
